FAERS Safety Report 15419927 (Version 1)
Quarter: 2018Q3

REPORT INFORMATION
  Report Type: Spontaneous
  Country: US (occurrence: US)
  Receive Date: 20180924
  Receipt Date: 20180924
  Transmission Date: 20181010
  Serious: No
  Sender: FDA-Public Use
  Company Number: US-ADAMAS PHARMA, LLC-2018ADA01255

PATIENT
  Sex: Male

DRUGS (3)
  1. GOCOVRI [Suspect]
     Active Substance: AMANTADINE
     Dosage: 1 CAPSULES, 1X/DAY IN THE EVENING
     Route: 048
     Dates: start: 20180615, end: 20180621
  2. GOCOVRI [Suspect]
     Active Substance: AMANTADINE
     Dosage: 2 CAPSULES, 1X/DAY IN THE EVENING
     Route: 048
     Dates: start: 20180512, end: 20180614
  3. GOCOVRI [Suspect]
     Active Substance: AMANTADINE
     Dosage: 1 CAPSULES, 1X/DAY IN THE EVENING
     Route: 048
     Dates: start: 20180505, end: 20180511

REACTIONS (4)
  - Feeling abnormal [Recovered/Resolved]
  - Somnolence [Recovered/Resolved]
  - Dyskinesia [Not Recovered/Not Resolved]
  - Insomnia [Not Recovered/Not Resolved]

NARRATIVE: CASE EVENT DATE: 201806
